FAERS Safety Report 4409619-5 (Version None)
Quarter: 2004Q3

REPORT INFORMATION
  Report Type: 
  Country: None (occurrence: None)
  Receive Date: 20040726
  Receipt Date: 20040712
  Transmission Date: 20050211
  Serious: No
  Sender: FDA-Public Use
  Company Number: 02100-JPN-04-0204

PATIENT
  Age: 76 Year
  Sex: Male

DRUGS (3)
  1. CILOSTAZOL [Suspect]
     Indication: ATHEROSCLEROSIS OBLITERANS
     Dosage: 100- MG
     Route: 048
     Dates: start: 20030201, end: 20040706
  2. BERAPROST SODIUM [Suspect]
     Dosage: 120 MCG
     Route: 048
     Dates: start: 20030701, end: 20040702
  3. LOXOPROFEN SODIUM [Suspect]
     Dosage: 180 MG
     Route: 048
     Dates: start: 20030701, end: 20040702

REACTIONS (1)
  - EOSINOPHILIC PNEUMONIA [None]
